FAERS Safety Report 12166961 (Version 2)
Quarter: 2016Q1

REPORT INFORMATION
  Report Type: Spontaneous
  Country: US (occurrence: US)
  Receive Date: 20160310
  Receipt Date: 20160316
  Transmission Date: 20160526
  Serious: Yes (Other)
  Sender: FDA-Public Use
  Company Number: US-BEH-2016059570

PATIENT
  Sex: Female
  Weight: 75 kg

DRUGS (16)
  1. HIZENTRA [Suspect]
     Active Substance: HUMAN IMMUNOGLOBULIN G
     Indication: HYPOGAMMAGLOBULINAEMIA
     Route: 058
     Dates: start: 20101015
  2. ADVAIR HFA [Concomitant]
     Active Substance: FLUTICASONE PROPIONATE\SALMETEROL XINAFOATE
  3. VITAMIN D [Concomitant]
     Active Substance: CHOLECALCIFEROL
  4. DIPHENHYDRAMINE. [Concomitant]
     Active Substance: DIPHENHYDRAMINE
  5. SYNTHROID [Concomitant]
     Active Substance: LEVOTHYROXINE SODIUM
  6. VITAMIN C [Concomitant]
     Active Substance: ASCORBIC ACID
  7. WELLBUTRIN XL [Concomitant]
     Active Substance: BUPROPION HYDROCHLORIDE
  8. LIDOCAINE/PRILOCAINE [Concomitant]
  9. CRESTOR [Concomitant]
     Active Substance: ROSUVASTATIN CALCIUM
  10. SPIRIVA [Concomitant]
     Active Substance: TIOTROPIUM BROMIDE MONOHYDRATE
  11. FLONASE [Concomitant]
     Active Substance: FLUTICASONE PROPIONATE
  12. FLAXSEED [Concomitant]
     Active Substance: FLAX SEED
  13. OMEGA [Concomitant]
     Active Substance: CONVALLARIA MAJALIS\CRATAEGUS LAEVIGATA LEAF\PROXYPHYLLINE
  14. EPIPEN [Concomitant]
     Active Substance: EPINEPHRINE
  15. RESTORIL [Concomitant]
     Active Substance: TEMAZEPAM
  16. CITRACAL [Concomitant]
     Active Substance: CALCIUM CITRATE

REACTIONS (2)
  - Pseudomonas infection [Unknown]
  - Cough [Unknown]
